FAERS Safety Report 6717963-1 (Version None)
Quarter: 2010Q2

REPORT INFORMATION
  Report Type: 
  Country: None (occurrence: None)
  Receive Date: 20100510
  Receipt Date: 20100430
  Transmission Date: 20101027
  Serious: Yes (Other)
  Sender: FDA-Public Use
  Company Number: DE-JNJCH-2010008976

PATIENT
  Sex: Female
  Weight: 69 kg

DRUGS (3)
  1. REGAINE 2% [Suspect]
     Indication: ALOPECIA
     Dosage: TEXT:1ML BID
     Route: 061
     Dates: start: 20100218, end: 20100312
  2. LEVOTHYROXINE SODIUM [Concomitant]
     Indication: DRUG USE FOR UNKNOWN INDICATION
     Dosage: TEXT:100 MG
     Route: 065
  3. VALETTE [Concomitant]
     Indication: DRUG USE FOR UNKNOWN INDICATION
     Dosage: TEXT:1 TABLET DAILY
     Route: 048
     Dates: start: 19900101

REACTIONS (1)
  - HYPERSENSITIVITY [None]
